FAERS Safety Report 9082968 (Version 1)
Quarter: 2013Q1

REPORT INFORMATION
  Report Type: Report from Study
  Country: US (occurrence: US)
  Receive Date: 20130130
  Receipt Date: 20130130
  Transmission Date: 20140127
  Serious: No
  Sender: FDA-Public Use
  Company Number: US-ABBOTT-12P-163-0965290-00

PATIENT
  Age: 26 Year
  Sex: Female

DRUGS (9)
  1. HUMIRA 40 MG/0.8 ML PEN [Suspect]
     Indication: CROHN^S DISEASE
     Dosage: LOADING DOSE
     Dates: start: 20120802
  2. PREDNISONE [Concomitant]
     Indication: PRODUCT USED FOR UNKNOWN INDICATION
     Dosage: 25MG DAILY; TAPERING EVERY 5 DAYS BY 1/2 A PILL 10 MG TABS
  3. DICYCLOMINE [Concomitant]
     Indication: PRODUCT USED FOR UNKNOWN INDICATION
  4. ASACOL [Concomitant]
     Indication: PRODUCT USED FOR UNKNOWN INDICATION
  5. FERROUS SULFATE [Concomitant]
     Indication: PRODUCT USED FOR UNKNOWN INDICATION
     Dosage: 325 MG DAILY
  6. TRAMADOL [Concomitant]
     Indication: PRODUCT USED FOR UNKNOWN INDICATION
  7. PROMETHAZINE [Concomitant]
     Indication: NAUSEA
  8. BIRTH CONTROL LO-ESTROGEN [Concomitant]
     Indication: PRODUCT USED FOR UNKNOWN INDICATION
  9. VERAMYST [Concomitant]
     Indication: HYPERSENSITIVITY
     Route: 045

REACTIONS (1)
  - Hyperhidrosis [Recovering/Resolving]
